FAERS Safety Report 12721784 (Version 1)
Quarter: 2016Q3

REPORT INFORMATION
  Report Type: Report from Study
  Country: US (occurrence: US)
  Receive Date: 20160907
  Receipt Date: 20160907
  Transmission Date: 20161109
  Serious: Yes (Hospitalization)
  Sender: FDA-Public Use
  Company Number: US-BIOGEN-2016BI00286186

PATIENT
  Sex: Female

DRUGS (2)
  1. AVONEX [Suspect]
     Active Substance: INTERFERON BETA-1A
     Indication: MULTIPLE SCLEROSIS
     Route: 065
     Dates: start: 19980702, end: 20030509
  2. AVONEX [Suspect]
     Active Substance: INTERFERON BETA-1A
     Route: 065
     Dates: start: 20091209, end: 20130823

REACTIONS (7)
  - Spinal operation [Unknown]
  - Dental cosmetic procedure [Unknown]
  - Anxiety [Unknown]
  - Visual acuity reduced [Unknown]
  - Cognitive disorder [Unknown]
  - Insomnia [Unknown]
  - Optic neuritis [Unknown]
